FAERS Safety Report 9690827 (Version 3)
Quarter: 2013Q4

REPORT INFORMATION
  Report Type: Spontaneous
  Country: JP (occurrence: JP)
  Receive Date: 20131115
  Receipt Date: 20131219
  Transmission Date: 20140711
  Serious: Yes (Other)
  Sender: FDA-Public Use
  Company Number: JP-B.I. PHARMACEUTICALS,INC./RIDGEFIELD-2013-BI-37031NB

PATIENT
  Age: 63 Year
  Sex: Male

DRUGS (2)
  1. PRAZAXA [Suspect]
     Indication: ATRIAL FIBRILLATION
     Dosage: 220 MG
     Route: 048
  2. OLMETEC / OLMESARTAN MEDOXOMIL [Concomitant]
     Dosage: 5 MG
     Route: 048

REACTIONS (1)
  - Embolic stroke [Unknown]
